FAERS Safety Report 5016232-8 (Version None)
Quarter: 2006Q2

REPORT INFORMATION
  Report Type: 
  Country: None (occurrence: None)
  Receive Date: 20060414
  Receipt Date: 20060121
  Transmission Date: 20061013
  Serious: No
  Sender: FDA-Public Use
  Company Number: 2006SP000386

PATIENT
  Age: 56 Year
  Sex: Female
  Weight: 86.1834 kg

DRUGS (6)
  1. LUNESTA [Suspect]
     Indication: INSOMNIA
     Dosage: 2 MG 1X ORAL
     Route: 048
     Dates: start: 20060120, end: 20060120
  2. CELEBREX [Concomitant]
  3. ATORVASTATIN CALCIUM [Concomitant]
  4. XANAX [Concomitant]
  5. AMBIEN [Concomitant]
  6. VITAMINS [Concomitant]

REACTIONS (1)
  - DYSGEUSIA [None]
